FAERS Safety Report 15489664 (Version 1)
Quarter: 2018Q4

REPORT INFORMATION
  Report Type: Spontaneous
  Country: US (occurrence: US)
  Receive Date: 20181011
  Receipt Date: 20181011
  Transmission Date: 20190205
  Serious: No
  Sender: FDA-Public Use
  Company Number: US-ALLERGAN-1839850US

PATIENT
  Sex: Female

DRUGS (3)
  1. COMBIGAN [Suspect]
     Active Substance: BRIMONIDINE TARTRATE\TIMOLOL MALEATE
     Indication: PRODUCT USED FOR UNKNOWN INDICATION
     Dosage: 2 GTT, QHS
     Route: 047
     Dates: start: 2017
  2. COMBIGAN [Suspect]
     Active Substance: BRIMONIDINE TARTRATE\TIMOLOL MALEATE
     Dosage: UNK
     Route: 047
     Dates: start: 201706, end: 20180810
  3. TIMOPTIC [Concomitant]
     Active Substance: TIMOLOL MALEATE

REACTIONS (5)
  - Eye discharge [Recovered/Resolved]
  - Product dose omission [Unknown]
  - Rash [Recovered/Resolved]
  - Eye paraesthesia [Recovered/Resolved]
  - Eyelid margin crusting [Recovered/Resolved]
